FAERS Safety Report 9437617 (Version 2)
Quarter: 2013Q3

REPORT INFORMATION
  Report Type: Spontaneous
  Country: ES (occurrence: ES)
  Receive Date: 20130802
  Receipt Date: 20130822
  Transmission Date: 20140515
  Serious: Yes (Other)
  Sender: FDA-Public Use
  Company Number: ES-PFIZER INC-2013219208

PATIENT
  Sex: Male

DRUGS (2)
  1. LINEZOLID [Suspect]
     Indication: OSTEOMYELITIS
  2. GENTAMICIN SULFATE [Suspect]

REACTIONS (1)
  - Ototoxicity [Unknown]
